FAERS Safety Report 4786917-7 (Version None)
Quarter: 2005Q3

REPORT INFORMATION
  Report Type: 
  Country: None (occurrence: None)
  Receive Date: 20050929
  Receipt Date: 20050921
  Transmission Date: 20060218
  Serious: Yes (Death)
  Sender: FDA-Public Use
  Company Number: HQWYE601322SEP05

PATIENT
  Age: 24 Year

DRUGS (3)
  1. ETODOLAC [Suspect]
  2. ETHANOL (ETHANOL) [Suspect]
  3. UNKNOWN (UNKNOWN) [Suspect]

REACTIONS (1)
  - DEATH [None]
